FAERS Safety Report 15838182 (Version 1)
Quarter: 2019Q1

REPORT INFORMATION
  Report Type: Spontaneous
  Country: GB (occurrence: GB)
  Receive Date: 20190117
  Receipt Date: 20190117
  Transmission Date: 20190417
  Serious: Yes (Disabling)
  Sender: FDA-Public Use
  Company Number: GB-PFIZER INC-2019018824

PATIENT
  Age: 75 Year
  Sex: Female
  Weight: 79 kg

DRUGS (16)
  1. COLECALCIFEROL [Concomitant]
     Active Substance: CHOLECALCIFEROL
     Dosage: 1 DF, 1X/DAY
     Dates: start: 20180802
  2. FOSTAIR [Concomitant]
     Active Substance: BECLOMETHASONE\FORMOTEROL
     Dosage: UNK (ONE TO TWO PUFFS TWICE DAILY)
     Dates: start: 20180913
  3. DICLOFENAC DIETHYLAMINE [Concomitant]
     Active Substance: DICLOFENAC DIETHYLAMINE
     Dosage: 3 DF, 1X/DAY
     Dates: start: 20180802
  4. SOLIFENACIN [Concomitant]
     Active Substance: SOLIFENACIN
     Dosage: 1 DF, 1X/DAY
     Dates: start: 20180802, end: 20181217
  5. BENDROFLUMETHIAZIDE [Concomitant]
     Active Substance: BENDROFLUMETHIAZIDE
     Indication: HYPERTENSION
     Dosage: 1 DF, 1X/DAY (EVERY MORNING)
     Dates: start: 20180802
  6. NITROFURANTOIN. [Concomitant]
     Active Substance: NITROFURANTOIN
     Dosage: 2 DF, 1X/DAY
     Dates: start: 20181213, end: 20181216
  7. MORPHINE SULFATE. [Concomitant]
     Active Substance: MORPHINE SULFATE
     Dosage: UNK, AS NEEDED (2.5ML/5MG EVERY 4 FOUR HOURS)
     Dates: start: 20181030, end: 20181127
  8. TILDIEM [Concomitant]
     Active Substance: DILTIAZEM HYDROCHLORIDE
     Dosage: 1 DF, UNK (AS DIRECTED)
     Dates: start: 20180802
  9. COCODAMOL [Concomitant]
     Active Substance: ACETAMINOPHEN\CODEINE PHOSPHATE
     Dosage: 8 DF, 1X/DAY
     Dates: start: 20180802
  10. PRAVASTATIN. [Concomitant]
     Active Substance: PRAVASTATIN
     Indication: BLOOD CHOLESTEROL INCREASED
     Dosage: 1 DF, 1X/DAY (NIGHT)
     Dates: start: 20180802
  11. RAMIPRIL. [Concomitant]
     Active Substance: RAMIPRIL
     Indication: HYPERTENSION
     Dosage: 1 DF, 1X/DAY
     Dates: start: 20180802
  12. DOXAZOSIN MESILATE [Suspect]
     Active Substance: DOXAZOSIN MESYLATE
     Dosage: 4 MG, UNK
     Route: 048
     Dates: start: 20180802
  13. SALAMOL [SALBUTAMOL SULFATE] [Concomitant]
     Dosage: 2 DF, AS NEEDED
     Route: 055
     Dates: start: 20180802
  14. OMEPRAZOLE. [Concomitant]
     Active Substance: OMEPRAZOLE
     Dosage: 1 DF, 1X/DAY
     Dates: start: 20180802
  15. INDORAMIN [Concomitant]
     Active Substance: INDORAMIN
     Dosage: 2 DF, 1X/DAY (FOR 2 WEEKS)
     Dates: start: 20181217
  16. DENOSUMAB [Concomitant]
     Active Substance: DENOSUMAB
     Dosage: 1 DF, CYCLIC (6 MONTH, GIVEN BY RHEUMATOLOGIST)
     Dates: start: 20120926

REACTIONS (2)
  - Lower urinary tract symptoms [Unknown]
  - Cystitis [Unknown]

NARRATIVE: CASE EVENT DATE: 20181217
